FAERS Safety Report 23924508 (Version 1)
Quarter: 2024Q2

REPORT INFORMATION
  Report Type: Spontaneous
  Country: ES (occurrence: ES)
  Receive Date: 20240531
  Receipt Date: 20240531
  Transmission Date: 20240716
  Serious: Yes (Hospitalization)
  Sender: FDA-Public Use
  Company Number: None

PATIENT
  Age: 38 Year
  Sex: Female

DRUGS (8)
  1. CLONAZEPAM [Interacting]
     Active Substance: CLONAZEPAM
     Dosage: DAILY DOSE: 0.5 MILLIGRAM
     Route: 042
     Dates: start: 20240326
  2. IFOSFAMIDE [Interacting]
     Active Substance: IFOSFAMIDE
     Indication: Sarcoma metastatic
     Route: 042
     Dates: start: 20240327, end: 20240327
  3. LIDOCAINE [Interacting]
     Active Substance: LIDOCAINE
     Dosage: DAILY DOSE: 160 MILLIGRAM
     Route: 042
     Dates: start: 20240326, end: 20240328
  4. SULFAMETHOXAZOLE\TRIMETHOPRIM [Interacting]
     Active Substance: SULFAMETHOXAZOLE\TRIMETHOPRIM
     Route: 048
     Dates: start: 20240313
  5. GABAPENTIN [Interacting]
     Active Substance: GABAPENTIN
     Dosage: DAILY DOSE: 1800 MILLIGRAM
     Route: 048
     Dates: start: 20240312, end: 20240329
  6. MORPHINE [Interacting]
     Active Substance: MORPHINE
     Indication: Pain
     Dosage: 6MG MORPHINE (X3)?DAILY DOSE: 36 MILLIGRAM
     Route: 058
     Dates: start: 20240317, end: 20240327
  7. EPIRUBICIN [Interacting]
     Active Substance: EPIRUBICIN
     Dates: start: 20240327
  8. PIPERACILLIN SODIUM\TAZOBACTAM SODIUM [Interacting]
     Active Substance: PIPERACILLIN SODIUM\TAZOBACTAM SODIUM
     Indication: Pyrexia
     Dates: start: 20240307, end: 20240314

REACTIONS (2)
  - Encephalopathy [Recovered/Resolved]
  - Dysphonia [Unknown]

NARRATIVE: CASE EVENT DATE: 20240328
